FAERS Safety Report 16688715 (Version 1)
Quarter: 2019Q3

REPORT INFORMATION
  Report Type: Spontaneous
  Country: US (occurrence: US)
  Receive Date: 20190809
  Receipt Date: 20190809
  Transmission Date: 20191004
  Serious: No
  Sender: FDA-Public Use
  Company Number: US-PURDUE-USA-2019-0147750

PATIENT
  Age: 63 Year
  Sex: Male

DRUGS (2)
  1. BUTRANS [Suspect]
     Active Substance: BUPRENORPHINE
     Indication: PAIN
     Dosage: 10 MCG/HR, WEEKLY
     Route: 062
     Dates: start: 2017
  2. BUTRANS [Suspect]
     Active Substance: BUPRENORPHINE
     Dosage: 10 MCG/HR, WEEKLY
     Route: 062

REACTIONS (8)
  - Lack of administration site rotation [Unknown]
  - Inappropriate schedule of product administration [Unknown]
  - Unevaluable event [Unknown]
  - Product physical consistency issue [Unknown]
  - Application site discolouration [Unknown]
  - Application site pain [Unknown]
  - Therapeutic product effect decreased [Unknown]
  - Product adhesion issue [Unknown]

NARRATIVE: CASE EVENT DATE: 20190716
